FAERS Safety Report 4394242-1 (Version None)
Quarter: 2004Q3

REPORT INFORMATION
  Report Type: 
  Country: None (occurrence: None)
  Receive Date: 20040707
  Receipt Date: 20040707
  Transmission Date: 20050211
  Serious: Yes (Death)
  Sender: FDA-Public Use
  Company Number: None

PATIENT
  Sex: Male

DRUGS (8)
  1. RITUXIMAB [Suspect]
     Indication: NON-HODGKIN'S LYMPHOMA
     Dates: start: 20040306, end: 20040306
  2. ACETYLCYSTINE 10% SOLN [Concomitant]
  3. FUROSEMIDE [Concomitant]
  4. HEPARIN [Concomitant]
  5. IPRATROPIUM BROMIDE [Concomitant]
  6. LISINOPRIL [Concomitant]
  7. NIFEDIPINE [Concomitant]
  8. ALBUTEROL [Concomitant]

REACTIONS (6)
  - BLOOD PRESSURE SYSTOLIC INCREASED [None]
  - BRADYCARDIA [None]
  - CYANOSIS [None]
  - HYPOTENSION [None]
  - OXYGEN SATURATION DECREASED [None]
  - RESPIRATORY DISTRESS [None]
